FAERS Safety Report 6444132-5 (Version None)
Quarter: 2009Q4

REPORT INFORMATION
  Report Type: 
  Country: None (occurrence: None)
  Receive Date: 20091118
  Receipt Date: 20091109
  Transmission Date: 20100525
  Serious: Yes (Other)
  Sender: FDA-Public Use
  Company Number: JP-JNJFOC-20091103385

PATIENT

DRUGS (4)
  1. DUROTEP MT PATCH [Suspect]
     Route: 062
  2. DUROTEP MT PATCH [Suspect]
     Indication: DRUG USE FOR UNKNOWN INDICATION
     Route: 062
  3. OPSO [Suspect]
     Indication: DRUG USE FOR UNKNOWN INDICATION
     Route: 048
  4. TEGRETOL [Concomitant]
     Route: 048

REACTIONS (4)
  - HYPERKALAEMIA [None]
  - ILEUS [None]
  - INADEQUATE ANALGESIA [None]
  - SOMNOLENCE [None]
